FAERS Safety Report 4487963-3 (Version None)
Quarter: 2004Q4

REPORT INFORMATION
  Report Type: 
  Country: None (occurrence: None)
  Receive Date: 20041028
  Receipt Date: 20041013
  Transmission Date: 20050328
  Serious: Yes (Other)
  Sender: FDA-Public Use
  Company Number: DE-MERCK-0410DEU00694

PATIENT
  Age: 81 Year
  Sex: Female

DRUGS (4)
  1. VIOXX [Suspect]
     Indication: POLYARTHRITIS
     Route: 048
     Dates: start: 20000401
  2. VIOXX [Suspect]
     Route: 048
  3. VIOXX [Suspect]
     Indication: OSTEOARTHRITIS
     Route: 048
     Dates: start: 20000401
  4. VIOXX [Suspect]
     Route: 048

REACTIONS (17)
  - ANXIETY [None]
  - APHONIA [None]
  - ARTHRALGIA [None]
  - BALANCE DISORDER [None]
  - BLINDNESS UNILATERAL [None]
  - CEREBROVASCULAR ACCIDENT [None]
  - CHEST DISCOMFORT [None]
  - DYSPNOEA [None]
  - FLUID RETENTION [None]
  - HEADACHE [None]
  - HEARING IMPAIRED [None]
  - HYPERHIDROSIS [None]
  - INSOMNIA [None]
  - MUSCLE CRAMP [None]
  - PAIN IN EXTREMITY [None]
  - PALPITATIONS [None]
  - VISUAL DISTURBANCE [None]
